FAERS Safety Report 12701696 (Version 1)
Quarter: 2016Q3

REPORT INFORMATION
  Report Type: Spontaneous
  Country: US (occurrence: US)
  Receive Date: 20160831
  Receipt Date: 20160831
  Transmission Date: 20161109
  Serious: No
  Sender: FDA-Public Use
  Company Number: US-JAZZ-2016-US-007287

PATIENT
  Sex: Male

DRUGS (18)
  1. PRAMIPEXOLE. [Concomitant]
     Active Substance: PRAMIPEXOLE
  2. CLONAZEPAM. [Concomitant]
     Active Substance: CLONAZEPAM
  3. REMERON [Concomitant]
     Active Substance: MIRTAZAPINE
  4. COMPAZINE [Concomitant]
     Active Substance: PROCHLORPERAZINE MALEATE
  5. XANAX [Concomitant]
     Active Substance: ALPRAZOLAM
  6. AMBIEN [Concomitant]
     Active Substance: ZOLPIDEM TARTRATE
  7. HYOMAX [Concomitant]
     Active Substance: HYOSCYAMINE SULFATE
  8. NUVIGIL [Concomitant]
     Active Substance: ARMODAFINIL
  9. OXYCODONE [Concomitant]
     Active Substance: OXYCODONE
  10. XYREM [Suspect]
     Active Substance: SODIUM OXYBATE
     Dosage: DOSE ADJUSTMENT
     Route: 048
  11. XYREM [Suspect]
     Active Substance: SODIUM OXYBATE
     Dosage: 4.5 G, BID
     Route: 048
     Dates: start: 201507
  12. DEXEDRINE [Concomitant]
     Active Substance: DEXTROAMPHETAMINE SULFATE
  13. NEURONTIN [Concomitant]
     Active Substance: GABAPENTIN
  14. PROZAC [Concomitant]
     Active Substance: FLUOXETINE HYDROCHLORIDE
  15. VIAGRA [Concomitant]
     Active Substance: SILDENAFIL CITRATE
  16. XYREM [Suspect]
     Active Substance: SODIUM OXYBATE
     Indication: PRODUCT USED FOR UNKNOWN INDICATION
     Dosage: 2.25 G, BID
     Route: 048
     Dates: start: 201102, end: 201103
  17. PROVIGIL [Concomitant]
     Active Substance: MODAFINIL
  18. CLONIDINE. [Concomitant]
     Active Substance: CLONIDINE

REACTIONS (3)
  - Unevaluable event [Not Recovered/Not Resolved]
  - Pre-existing condition improved [Unknown]
  - Nausea [Not Recovered/Not Resolved]
